FAERS Safety Report 21870646 (Version 1)
Quarter: 2023Q1

REPORT INFORMATION
  Report Type: Spontaneous
  Country: PK (occurrence: PK)
  Receive Date: 20230117
  Receipt Date: 20230117
  Transmission Date: 20230417
  Serious: Yes (Death, Other)
  Sender: FDA-Public Use
  Company Number: PK-WOCKHARDT LIMITED-2023WLD000004

PATIENT
  Age: 9 Year
  Sex: Female

DRUGS (2)
  1. CEFTRIAXONE [Suspect]
     Active Substance: CEFTRIAXONE
     Indication: Abscess
     Dosage: 0.5 GRAM
     Route: 042
  2. AMOXICILLIN [Concomitant]
     Active Substance: AMOXICILLIN
     Indication: Oropharyngeal pain
     Dosage: 125 MG/5ML, BID
     Route: 048

REACTIONS (3)
  - Cardio-respiratory arrest [Fatal]
  - Anaphylactic reaction [Fatal]
  - Product use in unapproved indication [Unknown]
